FAERS Safety Report 9880599 (Version 1)
Quarter: 2014Q1

REPORT INFORMATION
  Report Type: Spontaneous
  Country: US (occurrence: None)
  Receive Date: 20140206
  Receipt Date: 20140206
  Transmission Date: 20141002
  Serious: Yes (Other)
  Sender: FDA-Public Use
  Company Number: None

PATIENT
  Age: 11 Year
  Sex: Female
  Weight: 13.15 kg

DRUGS (2)
  1. GENERIC SINGULAIR - MONTELUKAST [Suspect]
     Indication: RHINITIS
     Route: 048
     Dates: start: 20131107, end: 20140130
  2. GENERIC SINGULAIR - MONTELUKAST [Suspect]
     Indication: RHINITIS
     Route: 048
     Dates: start: 20131107, end: 20140130

REACTIONS (1)
  - Malaise [None]
